FAERS Safety Report 6595187-9 (Version None)
Quarter: 2010Q1

REPORT INFORMATION
  Report Type: 
  Country: None (occurrence: None)
  Receive Date: 20100212
  Receipt Date: 20100125
  Transmission Date: 20100710
  Serious: Yes (Death)
  Sender: FDA-Public Use
  Company Number: 2010000732

PATIENT
  Age: 49 Year
  Sex: Female

DRUGS (6)
  1. AMRIX [Suspect]
     Dosage: ORAL
     Route: 048
  2. ACETAMINOPHEN W/ PROPOXYPHENE HCL [Suspect]
  3. LAMOTRIGINE [Suspect]
  4. ZOPICLONE [Suspect]
  5. ETHANOL [Suspect]
  6. ANTIHISTAMINE [Suspect]

REACTIONS (1)
  - COMPLETED SUICIDE [None]
